FAERS Safety Report 8903777 (Version 2)
Quarter: 2013Q1

REPORT INFORMATION
  Report Type: Spontaneous
  Country: IE (occurrence: IE)
  Receive Date: 20121113
  Receipt Date: 20130314
  Transmission Date: 20140127
  Serious: Yes (Other)
  Sender: FDA-Public Use
  Company Number: IE-009507513-1211GBR004764

PATIENT
  Age: 39 Year
  Sex: Female

DRUGS (4)
  1. NUVARING [Suspect]
     Indication: CONTRACEPTION
     Dosage: 1 RING/21 DAYS
     Route: 067
     Dates: start: 20060707, end: 2010
  2. NUVARING [Suspect]
     Dosage: 1 RING/21 DAYS
     Route: 067
     Dates: end: 20120227
  3. URSOFALK [Concomitant]
     Indication: BILIARY CIRRHOSIS PRIMARY
     Dosage: 1 TDS (1 DOSAGE FORM, 3 IN 1 D)
     Dates: start: 20090512, end: 20121026
  4. ELTROXIN [Concomitant]
     Indication: HYPOTHYROIDISM
     Dosage: 100 MICROGRAM, UNK
     Dates: start: 20110318, end: 20121026

REACTIONS (2)
  - Sinusitis [Recovered/Resolved]
  - Nasal congestion [Recovered/Resolved]
